FAERS Safety Report 11884578 (Version 1)
Quarter: 2016Q1

REPORT INFORMATION
  Report Type: Report from Study
  Country: US (occurrence: US)
  Receive Date: 20160104
  Receipt Date: 20160104
  Transmission Date: 20160526
  Serious: No
  Sender: FDA-Public Use
  Company Number: PHEH2015US007454

PATIENT
  Age: 44 Year
  Sex: Female
  Weight: 89.34 kg

DRUGS (2)
  1. GILENYA [Suspect]
     Active Substance: FINGOLIMOD HYDROCHLORIDE
     Indication: MULTIPLE SCLEROSIS
     Dosage: 0.5 MG, QD
     Route: 048
     Dates: start: 20110427
  2. GILENYA [Suspect]
     Active Substance: FINGOLIMOD HYDROCHLORIDE
     Dosage: 0.5 MG, 5 TIMES A WEEK
     Route: 048
     Dates: start: 20151229

REACTIONS (8)
  - Vertigo [Unknown]
  - Dysarthria [Unknown]
  - Dizziness [Unknown]
  - Gait disturbance [Unknown]
  - Cognitive disorder [Unknown]
  - Fatigue [Unknown]
  - Prescribed underdose [Unknown]
  - Multiple sclerosis relapse [Recovering/Resolving]

NARRATIVE: CASE EVENT DATE: 201410
